FAERS Safety Report 9715950 (Version 1)
Quarter: 2013Q4

REPORT INFORMATION
  Report Type: Spontaneous
  Country: US (occurrence: US)
  Receive Date: 20131127
  Receipt Date: 20131127
  Transmission Date: 20140711
  Serious: Yes (Other)
  Sender: FDA-Public Use
  Company Number: US-JNJFOC-20131115213

PATIENT
  Sex: 0

DRUGS (1)
  1. USTEKINUMAB [Suspect]
     Indication: CROHN^S DISEASE
     Route: 058

REACTIONS (4)
  - Arthralgia [Unknown]
  - Condition aggravated [Unknown]
  - Gastrointestinal haemorrhage [Unknown]
  - Off label use [Unknown]
